FAERS Safety Report 15525720 (Version 4)
Quarter: 2019Q1

REPORT INFORMATION
  Report Type: Spontaneous
  Country: JP (occurrence: JP)
  Receive Date: 20181018
  Receipt Date: 20190103
  Transmission Date: 20190417
  Serious: Yes (Death, Hospitalization, Other)
  Sender: FDA-Public Use
  Company Number: JP-PFIZER INC-2018423368

PATIENT
  Age: 9 Decade
  Sex: Female
  Weight: 43 kg

DRUGS (14)
  1. PREDNISOLONE. [Concomitant]
     Active Substance: PREDNISOLONE
     Dosage: 4.5 DF, UNK
  2. BIO-THREE [Concomitant]
     Active Substance: HERBALS
     Dosage: 3 UNK, UNK
  3. LULLAN [Suspect]
     Active Substance: PEROSPIRONE HYDROCHLORIDE
     Dosage: UNK
     Route: 048
  4. DAIKENCHUTO [Concomitant]
     Active Substance: HERBALS
     Dosage: 2.5 G,( 3 PACKS)UNK
     Route: 048
  5. AMPICILLIN AND SULBACTAM [Concomitant]
     Active Substance: AMPICILLIN SODIUM\SULBACTAM SODIUM
     Dosage: 6 G, DAILY
  6. KETOPROFEN POULTICE [Concomitant]
     Dosage: 40 MG, UNK
  7. TELMISARTAN. [Concomitant]
     Active Substance: TELMISARTAN
     Dosage: 1 UNK, UNK
  8. AMLODIPINE BESILATE [Suspect]
     Active Substance: AMLODIPINE BESYLATE
     Dosage: 5 MG, DAILY (1 TABLET)
     Route: 048
  9. GENINAX [Concomitant]
     Active Substance: GARENOXACIN MESYLATE
     Dosage: 400 MG, DAILY
  10. LANSOPRAZOLE. [Concomitant]
     Active Substance: LANSOPRAZOLE
     Dosage: 1 DF, UNK
  11. HORMONES [Concomitant]
     Active Substance: UNSPECIFIED INGREDIENT
     Dosage: UNK
  12. ALENDRONATE [Concomitant]
     Active Substance: ALENDRONATE SODIUM
     Dosage: 1 DF, UNK
  13. ROSUVASTATIN CALCIUM. [Concomitant]
     Active Substance: ROSUVASTATIN CALCIUM
     Dosage: 1 UNK, UNK
  14. TRAZENTA [Concomitant]
     Active Substance: LINAGLIPTIN
     Dosage: 1 UNK, UNK

REACTIONS (1)
  - Altered state of consciousness [Fatal]
